FAERS Safety Report 18306786 (Version 1)
Quarter: 2020Q3

REPORT INFORMATION
  Report Type: Spontaneous
  Country: US (occurrence: US)
  Receive Date: 20200924
  Receipt Date: 20200924
  Transmission Date: 20201103
  Serious: Yes (Other)
  Sender: FDA-Public Use
  Company Number: None

PATIENT
  Age: 67 Year
  Sex: Female
  Weight: 61.2 kg

DRUGS (6)
  1. CALCIUM [Concomitant]
     Active Substance: CALCIUM
  2. VITAMIN D [Concomitant]
     Active Substance: VITAMIN D NOS
  3. DOXYCYCLINE MONO 100 MG CAP [Suspect]
     Active Substance: DOXYCYCLINE
     Indication: DERMAL CYST
     Dosage: ?          QUANTITY:14 CAPSULE(S);?
     Route: 048
     Dates: start: 20200703, end: 20200710
  4. HYDROXUREA [Concomitant]
  5. DOXYCYCLINE MONO 100 MG CAP [Suspect]
     Active Substance: DOXYCYCLINE
     Indication: INFECTED DERMAL CYST
     Dosage: ?          QUANTITY:14 CAPSULE(S);?
     Route: 048
     Dates: start: 20200703, end: 20200710
  6. BABY ASPIRIN [Concomitant]
     Active Substance: ASPIRIN

REACTIONS (2)
  - Hot flush [None]
  - Skin burning sensation [None]

NARRATIVE: CASE EVENT DATE: 20200707
